FAERS Safety Report 19746015 (Version 1)
Quarter: 2021Q3

REPORT INFORMATION
  Report Type: Spontaneous
  Country: US (occurrence: US)
  Receive Date: 20210825
  Receipt Date: 20210825
  Transmission Date: 20211014
  Serious: Yes (Other)
  Sender: FDA-Public Use
  Company Number: US-ASTRAZENECA-2021A687696

PATIENT

DRUGS (3)
  1. PREVACID [Suspect]
     Active Substance: LANSOPRAZOLE
     Dosage: FOR VARIOUS DATES AND YEARS
     Route: 065
  2. PRILOSEC [Suspect]
     Active Substance: OMEPRAZOLE MAGNESIUM
     Dosage: FOR VARIOUS DATES AND YEARS
     Route: 048
  3. PROTONIX [Suspect]
     Active Substance: PANTOPRAZOLE SODIUM
     Dosage: FOR VARIOUS DATES AND YEARS
     Route: 065

REACTIONS (3)
  - Chronic kidney disease [Unknown]
  - Rebound acid hypersecretion [Unknown]
  - Acute kidney injury [Unknown]
